FAERS Safety Report 14404195 (Version 1)
Quarter: 2018Q1

REPORT INFORMATION
  Report Type: Report from Study
  Country: US (occurrence: US)
  Receive Date: 20180117
  Receipt Date: 20180117
  Transmission Date: 20180509
  Serious: Yes (Hospitalization, Other)
  Sender: FDA-Public Use
  Company Number: US-SHIRE-US201800679

PATIENT
  Age: 54 Year
  Sex: Female

DRUGS (3)
  1. LIALDA [Suspect]
     Active Substance: MESALAMINE
     Indication: COLITIS ULCERATIVE
     Dosage: 1.2 G, 1X/DAY:QD
     Route: 048
     Dates: start: 201711
  2. LIALDA [Suspect]
     Active Substance: MESALAMINE
     Dosage: 1.2 G, 1X/DAY:QD
     Route: 048
     Dates: end: 201710
  3. MESALAMINE. [Suspect]
     Active Substance: MESALAMINE
     Indication: COLITIS ULCERATIVE
     Dosage: UNK
     Route: 065
     Dates: start: 201710, end: 201711

REACTIONS (12)
  - Feeling abnormal [Recovered/Resolved]
  - Thyroid disorder [Not Recovered/Not Resolved]
  - Myocardial infarction [Recovered/Resolved]
  - Dyspnoea [Recovered/Resolved]
  - Dizziness [Recovered/Resolved]
  - Condition aggravated [Unknown]
  - Palpitations [Recovered/Resolved]
  - Asthma [Not Recovered/Not Resolved]
  - Pain [Recovered/Resolved]
  - Cough [Not Recovered/Not Resolved]
  - Myalgia [Recovered/Resolved]
  - Influenza [Recovered/Resolved]

NARRATIVE: CASE EVENT DATE: 20160216
